FAERS Safety Report 12846467 (Version 3)
Quarter: 2017Q1

REPORT INFORMATION
  Report Type: Spontaneous
  Country: US (occurrence: US)
  Receive Date: 20161014
  Receipt Date: 20170320
  Transmission Date: 20170428
  Serious: Yes (Hospitalization)
  Sender: FDA-Public Use
  Company Number: US-ACTELION-A-US2016-143286

PATIENT
  Age: 69 Year
  Sex: Female

DRUGS (4)
  1. OPSUMIT [Suspect]
     Active Substance: MACITENTAN
     Dosage: 10 MG, UNK
     Route: 048
     Dates: start: 201504
  2. REMODULIN [Concomitant]
     Active Substance: TREPROSTINIL
     Dosage: 64.6 NG/KG, PER MIN
     Dates: start: 201402
  3. OPSUMIT [Suspect]
     Active Substance: MACITENTAN
     Indication: PULMONARY ARTERIAL HYPERTENSION
     Dosage: 10 MG, QD
     Route: 048
     Dates: start: 20150501
  4. REMODULIN [Concomitant]
     Active Substance: TREPROSTINIL
     Dosage: 76.6 NG/KG, PER MIN
     Route: 065
     Dates: start: 20150130

REACTIONS (7)
  - Haemoglobin decreased [Recovered/Resolved]
  - Pain in jaw [Unknown]
  - Haematocrit decreased [Recovered/Resolved]
  - Pain in extremity [Unknown]
  - Transfusion [Recovered/Resolved]
  - Gastrointestinal haemorrhage [Recovered/Resolved]
  - Fatigue [Recovered/Resolved]

NARRATIVE: CASE EVENT DATE: 20160927
